FAERS Safety Report 20196321 (Version 1)
Quarter: 2021Q4

REPORT INFORMATION
  Report Type: Spontaneous
  Country: BD (occurrence: BD)
  Receive Date: 20211216
  Receipt Date: 20211216
  Transmission Date: 20220303
  Serious: Yes (Hospitalization)
  Sender: FDA-Public Use
  Company Number: BD-ELI_LILLY_AND_COMPANY-BD202112006774

PATIENT
  Age: 51 Year
  Sex: Male
  Weight: 125 kg

DRUGS (5)
  1. TRULICITY [Suspect]
     Active Substance: DULAGLUTIDE
     Indication: Diabetes mellitus
     Dosage: 0.75 MG, WEEKLY (1/W)
     Route: 058
     Dates: start: 20211121
  2. CLINDAMYCIN [Concomitant]
     Active Substance: CLINDAMYCIN
  3. LEVEMIR [Concomitant]
     Active Substance: INSULIN DETEMIR
     Indication: Product used for unknown indication
  4. NOVORAPID [Concomitant]
     Active Substance: INSULIN ASPART
     Indication: Product used for unknown indication
     Dosage: 20 U, BID
  5. MOXIBAC [Concomitant]
     Indication: Product used for unknown indication
     Dosage: UNK, DAILY

REACTIONS (2)
  - Pruritus [Recovering/Resolving]
  - Swelling face [Recovering/Resolving]

NARRATIVE: CASE EVENT DATE: 20211123
